FAERS Safety Report 6373828-9 (Version None)
Quarter: 2009Q3

REPORT INFORMATION
  Report Type: 
  Country: None (occurrence: None)
  Receive Date: 20090924
  Receipt Date: 20090528
  Transmission Date: 20100115
  Serious: No
  Sender: FDA-Public Use
  Company Number: US-ASTRAZENECA-2009UW13688

PATIENT
  Age: 681 Month
  Sex: Male

DRUGS (8)
  1. SEROQUEL [Suspect]
     Indication: SLEEP DISORDER
     Route: 048
  2. SEROQUEL [Suspect]
     Indication: RELAXATION THERAPY
     Route: 048
  3. LISINOPRIL [Concomitant]
  4. HALOPERIDOL [Concomitant]
  5. TRAMADOL HCL [Concomitant]
  6. GABAPENTIN [Concomitant]
  7. CITALOPRAM [Concomitant]
  8. LIPITOR [Concomitant]

REACTIONS (2)
  - DIZZINESS [None]
  - FALL [None]
